FAERS Safety Report 18723893 (Version 1)
Quarter: 2021Q1

REPORT INFORMATION
  Report Type: Spontaneous
  Country: US (occurrence: US)
  Receive Date: 20210109
  Receipt Date: 20210109
  Transmission Date: 20210419
  Serious: Yes (Life-Threatening, Disabling, Other)
  Sender: FDA-Public Use
  Company Number: None

PATIENT
  Age: 40 Year
  Sex: Female
  Weight: 78.3 kg

DRUGS (1)
  1. ABILIFY MAINTENA [Suspect]
     Active Substance: ARIPIPRAZOLE
     Indication: MENTAL DISORDER
     Dosage: ?          QUANTITY:1 INJECTION(S)?
     Route: 030

REACTIONS (9)
  - Injury [None]
  - Renal pain [None]
  - Female sexual dysfunction [None]
  - Accident [None]
  - General physical health deterioration [None]
  - Cardiac disorder [None]
  - Memory impairment [None]
  - Drug intolerance [None]
  - Amnesia [None]

NARRATIVE: CASE EVENT DATE: 20210107
